FAERS Safety Report 4860473-7 (Version None)
Quarter: 2005Q4

REPORT INFORMATION
  Report Type: 
  Country: None (occurrence: None)
  Receive Date: 20051219
  Receipt Date: 20051123
  Transmission Date: 20060501
  Serious: Yes (Hospitalization)
  Sender: FDA-Public Use
  Company Number: US-AMGEN-KDL159059

PATIENT
  Sex: Female

DRUGS (10)
  1. ENBREL [Suspect]
     Indication: RHEUMATOID ARTHRITIS
     Route: 058
     Dates: start: 20050823
  2. METHOTREXATE [Concomitant]
     Route: 048
     Dates: start: 20010601
  3. PREDNISONE [Concomitant]
     Dates: start: 20050505
  4. OXYCODONE HYDROCHLORIDE W/ACETAMINOPHEN [Concomitant]
     Dates: start: 20030701
  5. FOLATE SODIUM [Concomitant]
     Dates: start: 20010601
  6. PANTOPRAZOLE [Concomitant]
     Dates: start: 20030901
  7. DIPHENHYDRAMINE HCL [Concomitant]
     Dates: start: 20051001
  8. ESCITALOPRAM OXALATE [Concomitant]
     Dates: start: 20050301
  9. GABAPENTIN [Concomitant]
     Dates: start: 20050301
  10. MECLIZINE [Concomitant]
     Dates: start: 20030701

REACTIONS (2)
  - PERICARDIAL EFFUSION [None]
  - PLEURAL EFFUSION [None]
